FAERS Safety Report 25487576 (Version 1)
Quarter: 2025Q2

REPORT INFORMATION
  Report Type: Spontaneous
  Country: FR (occurrence: FR)
  Receive Date: 20250627
  Receipt Date: 20250627
  Transmission Date: 20250716
  Serious: Yes (Other)
  Sender: JOHNSON AND JOHNSON
  Company Number: None

PATIENT
  Age: 52 Year
  Sex: Male
  Weight: 75 kg

DRUGS (4)
  1. SIMPONI [Suspect]
     Active Substance: GOLIMUMAB
     Indication: Psoriatic arthropathy
     Route: 058
     Dates: start: 2013, end: 20250519
  2. SIMPONI [Suspect]
     Active Substance: GOLIMUMAB
  3. LAMOTRIGINE [Concomitant]
     Active Substance: LAMOTRIGINE
     Indication: Product used for unknown indication
  4. SEROPLEX 20 mg, film-coated tablet [Concomitant]
     Indication: Product used for unknown indication

REACTIONS (2)
  - Insomnia [Not Recovered/Not Resolved]
  - Major depression [Not Recovered/Not Resolved]

NARRATIVE: CASE EVENT DATE: 20130101
